FAERS Safety Report 6805264-2 (Version None)
Quarter: 2010Q2

REPORT INFORMATION
  Report Type: 
  Country: None (occurrence: None)
  Receive Date: 20100628
  Receipt Date: 20070927
  Transmission Date: 20101027
  Serious: Yes (Other)
  Sender: FDA-Public Use
  Company Number: US-PFIZER INC-2007080587

PATIENT
  Sex: Female

DRUGS (5)
  1. GEODON [Suspect]
     Indication: SCHIZOAFFECTIVE DISORDER
     Dates: start: 20040401
  2. GEODON [Suspect]
     Indication: BIPOLAR DISORDER
  3. ATIVAN [Concomitant]
  4. ZOLOFT [Concomitant]
  5. AMBIEN [Concomitant]

REACTIONS (3)
  - FATIGUE [None]
  - LETHARGY [None]
  - LOSS OF CONSCIOUSNESS [None]
